FAERS Safety Report 8485004-4 (Version None)
Quarter: 2012Q3

REPORT INFORMATION
  Report Type: 
  Country: None (occurrence: None)
  Receive Date: 20120703
  Receipt Date: 20120625
  Transmission Date: 20120928
  Serious: Yes (Hospitalization, Other)
  Sender: FDA-Public Use
  Company Number: US-ASTRAZENECA-2011SE32265

PATIENT
  Age: 62 Year
  Sex: Female

DRUGS (42)
  1. NEXIUM [Suspect]
     Route: 048
     Dates: start: 20010101, end: 20110501
  2. NEXIUM [Suspect]
     Route: 048
     Dates: start: 20030701
  3. LOVASTATIN [Concomitant]
     Indication: BLOOD CHOLESTEROL INCREASED
  4. DAPSONE [Concomitant]
     Indication: VASCULITIS
  5. PROPRANOLOL [Concomitant]
     Dates: start: 20031202
  6. MAXALT [Concomitant]
     Dosage: 10 MG PRN
     Dates: start: 20060127
  7. NITROGLYCERIN [Concomitant]
     Route: 060
     Dates: start: 20031202
  8. LIPITOR [Concomitant]
     Indication: BLOOD CHOLESTEROL
     Dates: start: 20031202
  9. DITROPAN XL [Concomitant]
     Dates: start: 20031202
  10. BENICAR HCT [Concomitant]
     Indication: HYPERTENSION
  11. ALLEGRA-D 12 HOUR [Concomitant]
     Indication: RHINITIS ALLERGIC
     Dates: start: 20050101
  12. MAXALT [Concomitant]
     Indication: MIGRAINE
     Dates: start: 20050101
  13. ACTONEL [Concomitant]
     Dosage: 35 MG WEEKLY
     Dates: start: 20060127
  14. NEXIUM [Suspect]
     Indication: GASTROOESOPHAGEAL REFLUX DISEASE
     Dosage: TOOK NEXIUM FOR SEVERAL YEARS
     Route: 048
  15. RECLAST [Concomitant]
     Indication: OSTEOPOROSIS
  16. PROPRANOLOL [Concomitant]
     Indication: MIGRAINE
     Dates: start: 20050101
  17. CARBEMAZEPIN [Concomitant]
     Indication: TRIGEMINAL NEURALGIA
  18. ALLEGRA-D 12 HOUR [Concomitant]
     Dates: start: 20031202
  19. ACTONEL [Concomitant]
     Dates: start: 20050101
  20. CRESTOR [Concomitant]
     Dosage: 10
     Dates: start: 20060127
  21. ALTACE [Concomitant]
     Dates: start: 20031202
  22. FLORINAL [Concomitant]
     Indication: HYPERTENSION
     Dates: start: 20060127
  23. LEXAPRO [Concomitant]
     Indication: DEPRESSION
  24. BENTYL [Concomitant]
     Indication: IRRITABLE BOWEL SYNDROME
     Dates: start: 20050101
  25. BENTYL [Concomitant]
     Dosage: 20 MG PRN
     Dates: start: 20060127
  26. SYNTHROID [Concomitant]
     Dates: start: 20100921
  27. BENICAR HCT [Concomitant]
     Dosage: 20/12.5 QD
     Dates: start: 20060127
  28. VITAMIN D [Concomitant]
     Indication: OSTEOPOROSIS
  29. DITROPAN XL [Concomitant]
     Indication: POLLAKIURIA
     Dates: start: 20050101
  30. WELLBUTRIN SR [Concomitant]
     Dates: start: 20050101
  31. ENABLEX [Concomitant]
     Indication: URINARY INCONTINENCE
  32. LIPITOR [Concomitant]
     Dates: start: 20050101
  33. BEXTRA [Concomitant]
     Dates: start: 20031202
  34. NEXIUM [Suspect]
     Route: 048
     Dates: start: 20031202
  35. PEPCID [Concomitant]
     Indication: GASTROOESOPHAGEAL REFLUX DISEASE
     Dates: start: 20110501
  36. ASATHIOPRINE [Concomitant]
     Indication: VASCULITIS
  37. PREVENTATIVE MAZALT [Concomitant]
     Indication: MIGRAINE
  38. ENABLEX [Concomitant]
     Dates: start: 20060127
  39. CALCIUM [Concomitant]
     Indication: OSTEOPOROSIS
  40. LOTREL [Concomitant]
     Indication: HYPERTENSION
     Dosage: 10/20 MG
     Dates: start: 20050101
  41. PERIOSTAT [Concomitant]
     Dates: start: 20050101
  42. ACTONEL [Concomitant]
     Dosage: 35 MG PRN T PO Q SATURDAY AM
     Route: 048

REACTIONS (17)
  - RADIUS FRACTURE [None]
  - UPPER LIMB FRACTURE [None]
  - TIBIA FRACTURE [None]
  - FEMUR FRACTURE [None]
  - ULNA FRACTURE [None]
  - WRIST FRACTURE [None]
  - LOWER LIMB FRACTURE [None]
  - OESOPHAGEAL SPASM [None]
  - SPINAL CORD COMPRESSION [None]
  - OSTEOPOROSIS [None]
  - SPINAL OSTEOARTHRITIS [None]
  - GASTROOESOPHAGEAL REFLUX DISEASE [None]
  - FOREARM FRACTURE [None]
  - FALL [None]
  - HYPOTHYROIDISM [None]
  - DEPRESSION [None]
  - SPINAL COLUMN STENOSIS [None]
